FAERS Safety Report 11125400 (Version 1)
Quarter: 2015Q2

REPORT INFORMATION
  Report Type: Spontaneous
  Country: US (occurrence: US)
  Receive Date: 20150520
  Receipt Date: 20150520
  Transmission Date: 20150821
  Serious: Yes (Other)
  Sender: FDA-Public Use
  Company Number: US-BAYER-2015-249579

PATIENT
  Sex: Female

DRUGS (1)
  1. SKYLA [Suspect]
     Active Substance: LEVONORGESTREL
     Dosage: 14 MCG/24HR, CONT
     Route: 015

REACTIONS (4)
  - White blood cell count increased [Not Recovered/Not Resolved]
  - Infection [Not Recovered/Not Resolved]
  - Pregnancy with contraceptive device [None]
  - Pelvic pain [Not Recovered/Not Resolved]
